FAERS Safety Report 10047320 (Version 2)
Quarter: 2014Q1

REPORT INFORMATION
  Report Type: Spontaneous
  Country: US (occurrence: US)
  Receive Date: 20140331
  Receipt Date: 20140331
  Transmission Date: 20141002
  Serious: No
  Sender: FDA-Public Use
  Company Number: US-MYLANLABS-2014S1001416

PATIENT
  Sex: Female
  Weight: 59.42 kg

DRUGS (1)
  1. FENTANYL TRANSDERMAL SYSTEM [Suspect]
     Indication: PAIN
     Route: 062

REACTIONS (6)
  - Application site pain [Recovered/Resolved]
  - Application site burn [Recovered/Resolved]
  - Application site rash [Recovered/Resolved]
  - Application site reaction [Recovered/Resolved]
  - Application site dermatitis [Recovered/Resolved]
  - Application site erythema [Recovered/Resolved]
